FAERS Safety Report 6124296-3 (Version None)
Quarter: 2009Q1

REPORT INFORMATION
  Report Type: 
  Country: None (occurrence: None)
  Receive Date: 20090317
  Receipt Date: 20080423
  Transmission Date: 20090719
  Serious: Yes (Other)
  Sender: FDA-Public Use
  Company Number: 8043871

PATIENT
  Sex: Male

DRUGS (4)
  1. KEPPRA [Suspect]
     Indication: GRAND MAL CONVULSION
     Dosage: 500 MG 2/D TRP
     Route: 064
     Dates: start: 20060101, end: 20070901
  2. KEPPRA [Suspect]
     Indication: GRAND MAL CONVULSION
     Dosage: 1500 MG TRP
     Route: 064
     Dates: start: 20070901, end: 20071201
  3. KEPPRA [Suspect]
     Indication: GRAND MAL CONVULSION
     Dosage: 1000 MG 2/D TRP
     Route: 064
     Dates: start: 20071201, end: 20080204
  4. VITAMIN TAB [Concomitant]

REACTIONS (3)
  - DERMAL CYST [None]
  - MATERNAL DRUGS AFFECTING FOETUS [None]
  - PREMATURE BABY [None]
